FAERS Safety Report 4989869-X (Version None)
Quarter: 2006Q2

REPORT INFORMATION
  Report Type: 
  Country: None (occurrence: None)
  Receive Date: 20060428
  Receipt Date: 20060420
  Transmission Date: 20061013
  Serious: Yes (Hospitalization)
  Sender: FDA-Public Use
  Company Number: HQWYE887320APR06

PATIENT
  Age: 85 Year
  Sex: Male

DRUGS (7)
  1. PANTOPRAZOLE SODIUM [Suspect]
     Indication: PROPHYLAXIS
     Dosage: 20 MG 1X PER 1 DAY ORAL
     Route: 048
  2. ACTONEL [Suspect]
     Indication: RHEUMATOID ARTHRITIS
     Dosage: 35 MG 1X PER 1WK ORAL
     Route: 048
  3. PREDNISONE TAB [Suspect]
     Indication: RHEUMATOID ARTHRITIS
     Dosage: 5 MG 1X PER 1 DAY ORAL
     Route: 048
     Dates: start: 19960101
  4. ACETAMINOPHEN W/ PROPOXYPHENE HCL [Suspect]
     Indication: PAIN
     Dosage: 2 DF ORAL
     Route: 048
  5. METHOTREXATE [Suspect]
     Indication: RHEUMATOID ARTHRITIS
     Dosage: 2.5 MG 4X PWE 1 WK ORAL
     Route: 048
     Dates: start: 19960101, end: 20051208
  6. HYDROXYCHLOROQUINE (HYDROXYCHLOROQUINE) [Concomitant]
  7. SULFASALAZINE [Concomitant]

REACTIONS (2)
  - ANAEMIA MACROCYTIC [None]
  - MYELODYSPLASTIC SYNDROME [None]
